FAERS Safety Report 4385462-0 (Version None)
Quarter: 2004Q2

REPORT INFORMATION
  Report Type: 
  Country: None (occurrence: None)
  Receive Date: 20040622
  Receipt Date: 20040607
  Transmission Date: 20050107
  Serious: Yes (Hospitalization)
  Sender: FDA-Public Use
  Company Number: 001#9#2004-00121

PATIENT
  Age: 84 Year
  Sex: Female

DRUGS (9)
  1. ISOKET-OHNE-DOSIS (ISOSORBIDE DINITRATE) [Suspect]
     Indication: CORONARY ARTERY ATHEROSCLEROSIS
     Dosage: 60 MG (60 MG 1 IN 1 DAY(S)
     Route: 048
     Dates: start: 20040315, end: 20040326
  2. MOLSIDOMINE (MOLSIDOMINE) [Suspect]
     Indication: CORONARY ARTERY ATHEROSCLEROSIS
     Dosage: 8 MG (8 MG 1 IN 1 DAY(S)
     Route: 048
     Dates: start: 20040312, end: 20040326
  3. METOPROLOL SUCCINATE [Suspect]
     Indication: CORONARY ARTERY ATHEROSCLEROSIS
     Dosage: 50 MG (50 MG 1 IN 1 DAY(S)
     Route: 048
     Dates: start: 20040312, end: 20040326
  4. BIVALIRUDIN [Concomitant]
  5. ACETYLSALICYLIC ACID SRT [Concomitant]
  6. RAMIPRIL [Concomitant]
  7. HYDROCHLOROTHIAZIDE [Concomitant]
  8. ATORVASTATIN CALCIUM [Concomitant]
  9. CLOPIDOGREL (CLOPIDOGREL) [Concomitant]

REACTIONS (6)
  - ACUTE CORONARY SYNDROME [None]
  - AORTIC VALVE STENOSIS [None]
  - CIRCULATORY COLLAPSE [None]
  - SICK SINUS SYNDROME [None]
  - VENTRICULAR HYPERTROPHY [None]
  - VERTIGO [None]
